FAERS Safety Report 23070352 (Version 1)
Quarter: 2023Q4

REPORT INFORMATION
  Report Type: Spontaneous
  Country: CN (occurrence: CN)
  Receive Date: 20231016
  Receipt Date: 20231016
  Transmission Date: 20240110
  Serious: Yes (Other)
  Sender: FDA-Public Use
  Company Number: CN-PFIZER INC-PV202300167176

PATIENT
  Age: 12 Year
  Sex: Female
  Weight: 38 kg

DRUGS (2)
  1. CYTARABINE [Suspect]
     Active Substance: CYTARABINE
     Indication: Acute lymphocytic leukaemia
     Dosage: 375 MG, 1X/DAY
     Route: 041
     Dates: start: 20230926, end: 20230926
  2. CYCLOPHOSPHAMIDE [Suspect]
     Active Substance: CYCLOPHOSPHAMIDE
     Indication: Acute lymphocytic leukaemia
     Dosage: 0.375 G, 1X/DAY
     Route: 041
     Dates: start: 20230926, end: 20230926

REACTIONS (3)
  - Anaphylactic shock [Recovering/Resolving]
  - Chills [Unknown]
  - Pyrexia [Not Recovered/Not Resolved]

NARRATIVE: CASE EVENT DATE: 20230926
